FAERS Safety Report 6384890-1 (Version None)
Quarter: 2009Q4

REPORT INFORMATION
  Report Type: 
  Country: None (occurrence: None)
  Receive Date: 20091002
  Receipt Date: 20090923
  Transmission Date: 20100525
  Serious: Yes (Hospitalization)
  Sender: FDA-Public Use
  Company Number: US-BIOGENIDEC-2009BI031129

PATIENT
  Age: 62 Year
  Sex: Female

DRUGS (2)
  1. AVONEX [Suspect]
     Indication: MULTIPLE SCLEROSIS
     Route: 030
     Dates: start: 20050212, end: 20060307
  2. AVONEX [Suspect]
     Route: 030
     Dates: start: 20060601

REACTIONS (2)
  - DIABETES MELLITUS [None]
  - MULTIPLE SCLEROSIS [None]
